FAERS Safety Report 21838763 (Version 1)
Quarter: 2023Q1

REPORT INFORMATION
  Report Type: Spontaneous
  Country: US (occurrence: None)
  Receive Date: 20230107
  Receipt Date: 20230107
  Transmission Date: 20230417
  Serious: Yes (Hospitalization)
  Sender: FDA-Public Use
  Company Number: None

PATIENT
  Sex: Female

DRUGS (4)
  1. REBIF REBIDOSE [Suspect]
     Active Substance: INTERFERON BETA-1A
     Indication: Multiple sclerosis
     Dosage: OTHER QUANTITY : 44 MCG/0.5ML;?FREQUENCY: INJECT 44 MCG INTO THE SKIN THREE TIMES A WEEK ON MONDAY,
     Route: 058
     Dates: start: 20150728
  2. REBIF REBIDOSE [Suspect]
     Active Substance: INTERFERON BETA-1A
     Dosage: FREQUENCY : AS DIRECTED;?
     Route: 058
  3. DALFAMPRIDIN ER [Concomitant]
  4. TOPAMAX [Concomitant]
     Active Substance: TOPIRAMATE

REACTIONS (4)
  - Movement disorder [None]
  - Fall [None]
  - Product dose omission issue [None]
  - Condition aggravated [None]
